FAERS Safety Report 4707864-2 (Version None)
Quarter: 2005Q3

REPORT INFORMATION
  Report Type: 
  Country: None (occurrence: None)
  Receive Date: 20050705
  Receipt Date: 20050705
  Transmission Date: 20060218
  Serious: Yes (Hospitalization, Other)
  Sender: FDA-Public Use
  Company Number: None

PATIENT
  Sex: Male
  Weight: 87.7 kg

DRUGS (5)
  1. ETOPOSIDE [Suspect]
     Indication: ACUTE LYMPHOCYTIC LEUKAEMIA
     Dosage: 100 MG/M2 IV  OVER 1 HR ON DAY (-3).
     Route: 042
     Dates: start: 20041201
  2. ALLOGENIC BONE MARROW CELLS [Suspect]
     Dosage: 3 X 10C8 IV ON DAY O.
     Route: 042
  3. GM-CSF [Suspect]
     Dosage: 250MCG/M2 SC QD STARTING ON DAY 0 UNTIL ANC}./= 1000/MCL
     Route: 058
  4. ALFA 2 INTERFERON [Suspect]
     Dosage: 3 MU SC TIW FOR 25 MONTHS, STARTING ON DAY 30.  NOTE: PH+ PTS. ONLY.
     Route: 058
  5. IRRADIATION [Suspect]
     Dosage: TOTAL DOSE 1320 CGY ON DAYS (-6)-(-4). NOTE: FOR MAILS ONLY 400 CGY TESTICULAR BOOST.

REACTIONS (7)
  - CONFUSIONAL STATE [None]
  - DYSPNOEA [None]
  - GRAFT VERSUS HOST DISEASE [None]
  - HYPOXIA [None]
  - OBLITERATIVE BRONCHIOLITIS [None]
  - POST PROCEDURAL COMPLICATION [None]
  - TACHYCARDIA [None]
